FAERS Safety Report 4434267-0 (Version None)
Quarter: 2004Q3

REPORT INFORMATION
  Report Type: 
  Country: None (occurrence: None)
  Receive Date: 20040825
  Receipt Date: 20040812
  Transmission Date: 20050211
  Serious: Yes (Hospitalization)
  Sender: FDA-Public Use
  Company Number: STA-AE-04-MTX-366

PATIENT
  Age: 74 Year
  Sex: Female

DRUGS (3)
  1. RHEUMATREX [Suspect]
     Indication: RHEUMATOID ARTHRITIS
     Dosage: 2 MG 1X PER 1 WK, ORAL
     Route: 048
     Dates: start: 20040730
  2. HYPEN (ETODOLAC) [Concomitant]
  3. PREDNISOLONE [Concomitant]

REACTIONS (3)
  - MALAISE [None]
  - PAIN IN EXTREMITY [None]
  - PYREXIA [None]
